FAERS Safety Report 14599604 (Version 1)
Quarter: 2018Q1

REPORT INFORMATION
  Report Type: Spontaneous
  Country: US (occurrence: US)
  Receive Date: 20180304
  Receipt Date: 20180304
  Transmission Date: 20180509
  Serious: No
  Sender: FDA-Public Use
  Company Number: None

PATIENT
  Age: 36 Year
  Sex: Female
  Weight: 56.25 kg

DRUGS (2)
  1. MENOPUR [Suspect]
     Active Substance: FOLLITROPIN\LUTEINIZING HORMONE
     Indication: INFERTILITY
     Dosage: ?          QUANTITY:75 INJECTION(S);?
     Route: 058
     Dates: start: 20180304
  2. OTHER MEDICATIONS OR IVF [Concomitant]

REACTIONS (3)
  - Product label issue [None]
  - Wrong technique in product usage process [None]
  - Product preparation error [None]

NARRATIVE: CASE EVENT DATE: 20180304
